FAERS Safety Report 19581828 (Version 1)
Quarter: 2021Q3

REPORT INFORMATION
  Report Type: Spontaneous
  Country: US (occurrence: US)
  Receive Date: 20210720
  Receipt Date: 20210720
  Transmission Date: 20211014
  Serious: No
  Sender: FDA-Public Use
  Company Number: US-AMGEN-USASP2021109295

PATIENT
  Sex: Female

DRUGS (6)
  1. CLINDAMYCIN. [Concomitant]
     Active Substance: CLINDAMYCIN
     Dosage: 300 MILLIGRAM
  2. ESTRADIOL. [Concomitant]
     Active Substance: ESTRADIOL
     Dosage: 0.037 MILLIGRAM
  3. SPIRONOLACTON [Concomitant]
     Active Substance: SPIRONOLACTONE
     Dosage: 50 MILLIGRAM
  4. METOPROLOL SUCCINATE. [Concomitant]
     Active Substance: METOPROLOL SUCCINATE
     Dosage: 25 MILLIGRAM (ER)
  5. OTEZLA [Suspect]
     Active Substance: APREMILAST
     Indication: ACNE
     Dosage: 30 MILLIGRAM, BID
     Route: 048
     Dates: start: 20191119
  6. PREDNISONE. [Concomitant]
     Active Substance: PREDNISONE
     Dosage: 5 MILLIGRAM

REACTIONS (3)
  - Acne [Not Recovered/Not Resolved]
  - Off label use [Unknown]
  - Product dose omission issue [Not Recovered/Not Resolved]
